FAERS Safety Report 9550999 (Version 1)
Quarter: 2013Q3

REPORT INFORMATION
  Report Type: Spontaneous
  Country: US (occurrence: US)
  Receive Date: 20130924
  Receipt Date: 20130924
  Transmission Date: 20140515
  Serious: No
  Sender: FDA-Public Use
  Company Number: US-SANOFI-AVENTIS-2013SA051483

PATIENT
  Age: 46 Year
  Sex: Female

DRUGS (11)
  1. AUBAGIO [Suspect]
     Indication: MULTIPLE SCLEROSIS
     Route: 048
     Dates: start: 20130516, end: 20130523
  2. SYNTHROID [Concomitant]
  3. ENABLEX [Concomitant]
  4. CITALOPRAM [Concomitant]
  5. BACLOFEN [Concomitant]
  6. ZANTAC [Concomitant]
  7. TIZANIDINE HYDROCHLORIDE [Concomitant]
  8. ASPIRIN [Concomitant]
  9. AMITRIPTYLINE HYDROCHLORIDE [Concomitant]
  10. VITAMIN B12 [Concomitant]
  11. VITAMIN D3 [Concomitant]
     Dosage: DOSE:50000 UNIT(S)

REACTIONS (4)
  - Flank pain [Unknown]
  - Adverse event [Unknown]
  - Depression [Unknown]
  - Diarrhoea [Unknown]
